FAERS Safety Report 13132173 (Version 2)
Quarter: 2017Q1

REPORT INFORMATION
  Report Type: Spontaneous
  Country: GB (occurrence: GB)
  Receive Date: 20170119
  Receipt Date: 20170308
  Transmission Date: 20170428
  Serious: Yes (Other)
  Sender: FDA-Public Use
  Company Number: GB-ASTRAZENECA-2017SE04986

PATIENT
  Age: 908 Month
  Sex: Female

DRUGS (2)
  1. FASLODEX [Suspect]
     Active Substance: FULVESTRANT
     Indication: NEOPLASM MALIGNANT
     Dosage: 250 MG IN EACH BUTTOCK, MONTHLY
     Route: 030
     Dates: start: 201601, end: 201607
  2. THYROXINE [Concomitant]
     Active Substance: LEVOTHYROXINE

REACTIONS (8)
  - Gait disturbance [Recovered/Resolved]
  - Injection site mass [Unknown]
  - Neck mass [Unknown]
  - Dyspnoea [Unknown]
  - Spinal disorder [Unknown]
  - Lung disorder [Unknown]
  - Musculoskeletal disorder [Unknown]
  - Injection site erythema [Unknown]

NARRATIVE: CASE EVENT DATE: 201607
